FAERS Safety Report 20482620 (Version 1)
Quarter: 2022Q1

REPORT INFORMATION
  Report Type: Report from Study
  Country: US (occurrence: US)
  Receive Date: 20220217
  Receipt Date: 20220217
  Transmission Date: 20220423
  Serious: Yes (Life-Threatening, Other)
  Sender: FDA-Public Use
  Company Number: US-JNJFOC-20220228420

PATIENT
  Age: 32 Year
  Sex: Female

DRUGS (3)
  1. RIVAROXABAN [Suspect]
     Active Substance: RIVAROXABAN
     Indication: Atrial fibrillation
     Route: 048
     Dates: start: 202005
  2. RIVAROXABAN [Suspect]
     Active Substance: RIVAROXABAN
     Indication: Cerebrovascular accident prophylaxis
  3. RIVAROXABAN [Suspect]
     Active Substance: RIVAROXABAN
     Indication: Abnormal clotting factor

REACTIONS (4)
  - Cerebrovascular accident [Recovering/Resolving]
  - Transient ischaemic attack [Unknown]
  - Off label use [Unknown]
  - Inappropriate schedule of product administration [Unknown]
